FAERS Safety Report 7442740-6 (Version None)
Quarter: 2011Q2

REPORT INFORMATION
  Report Type: 
  Country: None (occurrence: None)
  Receive Date: 20110428
  Receipt Date: 20110422
  Transmission Date: 20111010
  Serious: Yes (Other)
  Sender: FDA-Public Use
  Company Number: CHNY2011JP00447

PATIENT
  Age: 36 Year
  Sex: Female

DRUGS (2)
  1. PUSENNID [Suspect]
     Indication: WEIGHT DECREASED
     Dosage: UNK
     Route: 048
  2. BISACODYL [Suspect]
     Route: 065

REACTIONS (5)
  - HYDRONEPHROSIS [None]
  - HAEMATURIA [None]
  - CALCULUS URETERIC [None]
  - FLANK PAIN [None]
  - OFF LABEL USE [None]
